FAERS Safety Report 5613382-X (Version None)
Quarter: 2008Q1

REPORT INFORMATION
  Report Type: 
  Country: None (occurrence: None)
  Receive Date: 20080129
  Receipt Date: 20080111
  Transmission Date: 20080703
  Serious: Yes (Hospitalization)
  Sender: FDA-Public Use
  Company Number: DSA_31337_2008

PATIENT
  Age: 87 Year
  Sex: Female

DRUGS (7)
  1. TILDIEM (TILDIEM - DILTIAZEM HYDROCHLORIDE) ( 300 MG, 60 MG, 60 MG) (N [Suspect]
     Indication: DRUG USE FOR UNKNOWN INDICATION
     Dosage: (300 MG TID ORAL), (60 MG TID ORAL) (30 MG BID ORAL)
     Route: 048
     Dates: end: 20071201
  2. TILDIEM (TILDIEM - DILTIAZEM HYDROCHLORIDE) ( 300 MG, 60 MG, 60 MG) (N [Suspect]
     Indication: DRUG USE FOR UNKNOWN INDICATION
     Dosage: (300 MG TID ORAL), (60 MG TID ORAL) (30 MG BID ORAL)
     Route: 048
     Dates: start: 20071201, end: 20080101
  3. TILDIEM (TILDIEM - DILTIAZEM HYDROCHLORIDE) ( 300 MG, 60 MG, 60 MG) (N [Suspect]
     Indication: DRUG USE FOR UNKNOWN INDICATION
     Dosage: (300 MG TID ORAL), (60 MG TID ORAL) (30 MG BID ORAL)
     Route: 048
     Dates: start: 20080110
  4. RABEPRAZOLE SODIUM [Concomitant]
  5. GLIMEPIRIDE [Concomitant]
  6. CLOPIDOGREL [Concomitant]
  7. FUROSEMIDE [Concomitant]

REACTIONS (3)
  - BRADYCARDIA [None]
  - HYPOTONIA [None]
  - INCORRECT DOSE ADMINISTERED [None]
